FAERS Safety Report 21553959 (Version 1)
Quarter: 2022Q4

REPORT INFORMATION
  Report Type: Spontaneous
  Country: NL (occurrence: NL)
  Receive Date: 20221104
  Receipt Date: 20221104
  Transmission Date: 20230113
  Serious: Yes (Life-Threatening)
  Sender: FDA-Public Use
  Company Number: None

PATIENT
  Sex: Female
  Weight: 70 kg

DRUGS (1)
  1. METOCLOPRAMIDE [Suspect]
     Active Substance: METOCLOPRAMIDE
     Indication: Abdominal discomfort
     Dosage: 10 MILLIGRAM DAILY; 1X PER DAY 1 PIECE, STRENGTH : 10MG / BRAND NAME NOT SPECIFIED, DURATION : 1 DAY
     Route: 065
     Dates: start: 20130407, end: 20130408

REACTIONS (1)
  - Swollen tongue [Recovered/Resolved]
